FAERS Safety Report 5798211-6 (Version None)
Quarter: 2008Q3

REPORT INFORMATION
  Report Type: 
  Country: None (occurrence: None)
  Receive Date: 20080702
  Receipt Date: 20080624
  Transmission Date: 20090109
  Serious: Yes (Hospitalization)
  Sender: FDA-Public Use
  Company Number: B0526243A

PATIENT
  Age: 55 Year
  Sex: Female

DRUGS (3)
  1. SERETIDE [Suspect]
     Indication: ASTHMA
     Route: 055
     Dates: start: 20071201
  2. LANSOPRAZOLE [Concomitant]
     Route: 065
  3. HORMONE REPLACEMENT THERAPY [Concomitant]
     Route: 065

REACTIONS (5)
  - ASTHMA [None]
  - COUGH [None]
  - DIVERTICULITIS [None]
  - INFLUENZA [None]
  - MALAISE [None]
